FAERS Safety Report 9035669 (Version 1)
Quarter: 2013Q1

REPORT INFORMATION
  Report Type: Report from Study
  Country: US (occurrence: US)
  Receive Date: 20130129
  Receipt Date: 20130129
  Transmission Date: 20140127
  Serious: Yes (Hospitalization)
  Sender: FDA-Public Use
  Company Number: US-ABBOTT-12P-163-0910172-00

PATIENT
  Age: 47 Year
  Sex: Female

DRUGS (4)
  1. HUMIRA 40 MG/ 0.8 ML PRE-FILLED SYRINGE [Suspect]
     Indication: CROHN^S DISEASE
     Dates: start: 2006
  2. CONTRAST MEDIA [Suspect]
     Indication: COMPUTERISED TOMOGRAM
     Dates: start: 201202, end: 201202
  3. ULTRACET [Concomitant]
     Indication: PAIN
  4. PREDNISONE [Concomitant]
     Indication: PRODUCT USED FOR UNKNOWN INDICATION

REACTIONS (11)
  - Crohn^s disease [Recovering/Resolving]
  - Decreased appetite [Unknown]
  - Contrast media allergy [Recovering/Resolving]
  - Blister [Recovering/Resolving]
  - Skin burning sensation [Recovering/Resolving]
  - Skin exfoliation [Recovering/Resolving]
  - Pruritus [Recovering/Resolving]
  - Bone neoplasm [Recovering/Resolving]
  - Skin burning sensation [Recovering/Resolving]
  - Stress [Unknown]
  - Arthralgia [Recovering/Resolving]
